FAERS Safety Report 15885229 (Version 1)
Quarter: 2019Q1

REPORT INFORMATION
  Report Type: Spontaneous
  Country: IT (occurrence: IT)
  Receive Date: 20190129
  Receipt Date: 20190129
  Transmission Date: 20190417
  Serious: Yes (Hospitalization)
  Sender: FDA-Public Use
  Company Number: IT-SAKK-2019SA020768AA

PATIENT
  Age: 86 Year
  Sex: Female

DRUGS (6)
  1. NITROGLYCERIN. [Suspect]
     Active Substance: NITROGLYCERIN
     Indication: BLOOD PRESSURE INCREASED
     Dosage: 20 MG, QD
     Route: 042
     Dates: start: 20190103, end: 20190103
  2. CORDARONE [Suspect]
     Active Substance: AMIODARONE HYDROCHLORIDE
     Indication: BLOOD PRESSURE INCREASED
     Dosage: 600 MG, TOTAL
     Route: 042
     Dates: start: 20190103, end: 20190103
  3. FLECTADOL (ACETYLSALICYLATE LYSINE) [Suspect]
     Active Substance: ASPIRIN DL-LYSINE
     Indication: PRODUCT USED FOR UNKNOWN INDICATION
     Dosage: 250 MG, TOTAL
     Route: 065
     Dates: start: 20190103, end: 20190103
  4. CLEXANE [Suspect]
     Active Substance: ENOXAPARIN SODIUM
     Indication: BLOOD PRESSURE INCREASED
     Dosage: 8000 IU, TOTAL
     Route: 065
     Dates: start: 20190103, end: 20190103
  5. LASIX [Suspect]
     Active Substance: FUROSEMIDE
     Indication: BLOOD PRESSURE INCREASED
     Dosage: 40 MG, TOTAL
     Route: 042
     Dates: start: 20190103, end: 20190103
  6. ZANTAC [Suspect]
     Active Substance: RANITIDINE HYDROCHLORIDE
     Indication: PRODUCT USED FOR UNKNOWN INDICATION
     Dosage: 50 MG, TOTAL
     Route: 042
     Dates: start: 20190103, end: 20190103

REACTIONS (2)
  - Metabolic acidosis [Recovered/Resolved]
  - Respiratory alkalosis [Recovered/Resolved]

NARRATIVE: CASE EVENT DATE: 20190103
